FAERS Safety Report 8954649 (Version 1)
Quarter: 2012Q4

REPORT INFORMATION
  Report Type: Spontaneous
  Country: US (occurrence: None)
  Receive Date: 20121205
  Receipt Date: 20121205
  Transmission Date: 20130627
  Serious: Yes (Life-Threatening, Disabling)
  Sender: FDA-Public Use
  Company Number: None

PATIENT

DRUGS (2)
  1. OXCARBAZEPINE [Suspect]
     Indication: BIPOLAR DISORDER
     Dates: start: 2008
  2. OXCARBAZEPINE [Suspect]
     Indication: EPILEPSY
     Dates: start: 2008

REACTIONS (7)
  - Fall [None]
  - Upper limb fracture [None]
  - Vitamin D decreased [None]
  - Blood calcium abnormal [None]
  - Insomnia [None]
  - Bradyphrenia [None]
  - Cough [None]
